FAERS Safety Report 19940974 (Version 2)
Quarter: 2021Q4

REPORT INFORMATION
  Report Type: Spontaneous
  Country: US (occurrence: US)
  Receive Date: 20211012
  Receipt Date: 20211227
  Transmission Date: 20220303
  Serious: No
  Sender: FDA-Public Use
  Company Number: US-AVEO ONCOLOGY-2021-AVEO-US003516

PATIENT

DRUGS (12)
  1. FOTIVDA [Suspect]
     Active Substance: TIVOZANIB HYDROCHLORIDE
     Indication: Renal cell carcinoma
     Dosage: 0.89 MG, DAILY FOR 21 DAYS FOLLOWING 7 DAY BREAK
     Route: 048
     Dates: start: 20210827
  2. VITAMINS [Concomitant]
     Active Substance: VITAMINS
  3. DAIRY RELIEF [Concomitant]
  4. KEYTRUDA [Concomitant]
     Active Substance: PEMBROLIZUMAB
  5. LAMOTRIGINE [Concomitant]
     Active Substance: LAMOTRIGINE
  6. LIDOCAINE\PRILOCAINE [Concomitant]
     Active Substance: LIDOCAINE\PRILOCAINE
  7. NICOTINE [Concomitant]
     Active Substance: NICOTINE
  8. OMEGA 3 [Concomitant]
     Active Substance: CAPSAICIN
  9. SF 5000 PLUS [Concomitant]
     Active Substance: SODIUM FLUORIDE
  10. VALTREX [Concomitant]
     Active Substance: VALACYCLOVIR HYDROCHLORIDE
  11. VITAMIN C [Concomitant]
     Active Substance: ASCORBIC ACID
  12. MINERALS\VITAMINS [Concomitant]
     Active Substance: MINERALS\VITAMINS

REACTIONS (1)
  - Constipation [Unknown]
